FAERS Safety Report 23747143 (Version 8)
Quarter: 2024Q3

REPORT INFORMATION
  Report Type: Spontaneous
  Country: US (occurrence: US)
  Receive Date: 20240416
  Receipt Date: 20240826
  Transmission Date: 20241017
  Serious: No
  Sender: NOVARTIS
  Company Number: US-002147023-NVSC2024US079624

PATIENT

DRUGS (1)
  1. KESIMPTA [Suspect]
     Active Substance: OFATUMUMAB
     Indication: Product used for unknown indication
     Dosage: UNK (FROM LAST 4 MONTHS)
     Route: 065

REACTIONS (17)
  - Influenza like illness [Unknown]
  - Nocturia [Unknown]
  - Asthenia [Unknown]
  - Fatigue [Unknown]
  - Chills [Unknown]
  - Headache [Unknown]
  - Infection [Unknown]
  - Constipation [Unknown]
  - Abdominal pain upper [Unknown]
  - Feeling of body temperature change [Unknown]
  - Malaise [Unknown]
  - Hyperhidrosis [Unknown]
  - Blister [Unknown]
  - Glossodynia [Unknown]
  - Oropharyngeal pain [Unknown]
  - Neck pain [Unknown]
  - Lymphadenopathy [Unknown]
